FAERS Safety Report 7726694-0 (Version None)
Quarter: 2011Q3

REPORT INFORMATION
  Report Type: 
  Country: None (occurrence: None)
  Receive Date: 20110831
  Receipt Date: 20110808
  Transmission Date: 20111222
  Serious: Yes (Life-Threatening)
  Sender: FDA-Public Use
  Company Number: 2135225-2011-00076

PATIENT
  Age: 68 Year
  Sex: Male

DRUGS (2)
  1. AETHOXYSKOLEROL [Suspect]
     Dosage: APPROX. 10 ML
  2. WYSTAL (CEFOPERAZONE SODIUM) [Concomitant]

REACTIONS (1)
  - ANAPHYLACTIC SHOCK [None]
